FAERS Safety Report 8049734-0 (Version None)
Quarter: 2012Q1

REPORT INFORMATION
  Report Type: 
  Country: None (occurrence: None)
  Receive Date: 20120117
  Receipt Date: 20120109
  Transmission Date: 20120608
  Serious: Yes (Other)
  Sender: FDA-Public Use
  Company Number: GR-GLAXOSMITHKLINE-B0775507A

PATIENT
  Age: 74 Year
  Sex: Female

DRUGS (3)
  1. ANTICOAGULANT [Concomitant]
  2. FLUTICASONE PROPIONATE/SALMETEROL [Suspect]
     Indication: BRONCHITIS
     Dates: start: 20111224, end: 20120107
  3. ANTIHYPERTENSIVE [Concomitant]

REACTIONS (1)
  - CORNEAL BLEEDING [None]
